FAERS Safety Report 6230013-9 (Version None)
Quarter: 2009Q2

REPORT INFORMATION
  Report Type: 
  Country: None (occurrence: None)
  Receive Date: 20090615
  Receipt Date: 20090610
  Transmission Date: 20091009
  Serious: No
  Sender: FDA-Public Use
  Company Number: US-B.I. PHARMACEUTICALS,INC./RIDGEFIELD-2009-BP-07189BP

PATIENT
  Sex: Female

DRUGS (3)
  1. SPIRIVA [Suspect]
     Indication: ASTHMA
     Dosage: 18MCG
     Route: 055
     Dates: start: 20080601
  2. ADVAIR HFA [Concomitant]
     Indication: ASTHMA
     Route: 055
  3. COZAAR [Concomitant]
     Indication: HYPERTENSION
     Dosage: 100MG
     Route: 048

REACTIONS (2)
  - DIZZINESS [None]
  - URINARY TRACT INFECTION [None]
